FAERS Safety Report 10503573 (Version 1)
Quarter: 2014Q4

REPORT INFORMATION
  Report Type: Spontaneous
  Country: DE (occurrence: DE)
  Receive Date: 20141008
  Receipt Date: 20141008
  Transmission Date: 20150528
  Serious: Yes (Other)
  Sender: FDA-Public Use
  Company Number: DE-AMGEN-DEUSP2014076137

PATIENT
  Sex: Male

DRUGS (1)
  1. ENBREL [Suspect]
     Active Substance: ETANERCEPT
     Indication: PSORIASIS
     Dosage: 50 MG, WEEKLY
     Route: 065
     Dates: start: 20130624

REACTIONS (4)
  - Fistula [Not Recovered/Not Resolved]
  - Tooth disorder [Not Recovered/Not Resolved]
  - Medical device complication [Not Recovered/Not Resolved]
  - Jaw disorder [Unknown]
